FAERS Safety Report 10790535 (Version 2)
Quarter: 2015Q2

REPORT INFORMATION
  Report Type: Spontaneous
  Country: US (occurrence: US)
  Receive Date: 20150212
  Receipt Date: 20150518
  Transmission Date: 20150821
  Serious: Yes (Other)
  Sender: FDA-Public Use
  Company Number: US-GLAXOSMITHKLINE-US2015GSK018189

PATIENT
  Sex: Male

DRUGS (4)
  1. AMLODIPINE + TELMISARTAN [Concomitant]
  2. AMBIEN [Concomitant]
     Active Substance: ZOLPIDEM TARTRATE
  3. VOTRIENT [Suspect]
     Active Substance: PAZOPANIB HYDROCHLORIDE
     Indication: RENAL CANCER
     Dosage: 800 MG, QD
     Dates: start: 20140322
  4. LEVOTHYROXINE [Concomitant]
     Active Substance: LEVOTHYROXINE

REACTIONS (9)
  - Wrist surgery [Unknown]
  - Arthralgia [Unknown]
  - Back pain [Unknown]
  - Hyperthyroidism [Unknown]
  - Thyroid function test abnormal [Recovered/Resolved]
  - Pain [Not Recovered/Not Resolved]
  - Weight loss poor [Not Recovered/Not Resolved]
  - Musculoskeletal pain [Unknown]
  - Ill-defined disorder [Not Recovered/Not Resolved]

NARRATIVE: CASE EVENT DATE: 2015
